FAERS Safety Report 17042591 (Version 1)
Quarter: 2019Q4

REPORT INFORMATION
  Report Type: Spontaneous
  Country: JP (occurrence: JP)
  Receive Date: 20191118
  Receipt Date: 20191118
  Transmission Date: 20200122
  Serious: Yes (Disabling, Other)
  Sender: FDA-Public Use
  Company Number: JP-PFIZER INC-2019480795

PATIENT
  Age: 44 Year
  Sex: Female

DRUGS (10)
  1. TRAMAL [Suspect]
     Active Substance: TRAMADOL
     Dosage: 25 MG, 1X/DAY
     Route: 048
     Dates: start: 20191015, end: 20191105
  2. NEXIUM [Concomitant]
     Active Substance: ESOMEPRAZOLE MAGNESIUM
     Indication: GASTRITIS
     Dosage: 20 MG, DAILY
     Route: 048
  3. BILANOA [Concomitant]
     Active Substance: BILASTINE
     Indication: HYPERSENSITIVITY
     Dosage: 20 MG, DAILY
     Route: 048
  4. RIVOTRIL [Concomitant]
     Active Substance: CLONAZEPAM
     Indication: DEPRESSION
     Dosage: 1 MG, DAILY
     Route: 048
  5. LEVOCARNITINE [LEVOCARNITINE HYDROCHLORIDE] [Concomitant]
     Indication: CARNITINE DEFICIENCY
     Dosage: 1200 MG, DAILY
     Route: 048
  6. TRAMAL [Suspect]
     Active Substance: TRAMADOL
     Indication: PAIN
     Dosage: 25 MG, 3X/DAY
     Route: 048
     Dates: start: 20190821
  7. NORSPAN [Concomitant]
     Active Substance: BUPRENORPHINE
     Indication: PAIN
     Dosage: 10 MG, WEEKLY
  8. LYRICA [Suspect]
     Active Substance: PREGABALIN
     Indication: NEURALGIA
     Dosage: 50 MG, DAILY
     Route: 048
     Dates: end: 20191111
  9. NEUROTROPIN [RABBIT VACCINIA EXTRACT] [Concomitant]
     Active Substance: ORYCTOLAGUS CUNICULUS SKIN
     Indication: NEURALGIA
     Dosage: 8 DF, UNK
     Route: 048
  10. NAUZELIN [Concomitant]
     Active Substance: DOMPERIDONE
     Indication: NAUSEA
     Dosage: 30 MG, DAILY
     Route: 048

REACTIONS (11)
  - Loss of consciousness [Not Recovered/Not Resolved]
  - Fall [Not Recovered/Not Resolved]
  - Pallor [Unknown]
  - Seizure [Unknown]
  - Pain [Unknown]
  - Fracture [Unknown]
  - Tremor [Unknown]
  - Epilepsy [Unknown]
  - Contusion [Unknown]
  - Haemorrhage [Unknown]
  - Meniscus injury [Unknown]

NARRATIVE: CASE EVENT DATE: 20190801
